FAERS Safety Report 12206641 (Version 1)
Quarter: 2016Q1

REPORT INFORMATION
  Report Type: Spontaneous
  Country: US (occurrence: US)
  Receive Date: 20160324
  Receipt Date: 20160324
  Transmission Date: 20160526
  Serious: Yes (Other)
  Sender: FDA-Public Use
  Company Number: US-RECKITT BENCKISER HEALTHCARE INT LIMITED-RB-83651-2016

PATIENT
  Sex: Male

DRUGS (1)
  1. MUCINEX [Suspect]
     Active Substance: GUAIFENESIN
     Indication: DRUG ABUSE
     Dosage: OVERDOSING FOR THE LAST TWO YEARS
     Route: 065

REACTIONS (3)
  - Intentional overdose [Recovering/Resolving]
  - No adverse event [Recovering/Resolving]
  - Drug abuse [Recovering/Resolving]
